FAERS Safety Report 6108421-6 (Version None)
Quarter: 2009Q1

REPORT INFORMATION
  Report Type: 
  Country: None (occurrence: None)
  Receive Date: 20090309
  Receipt Date: 20090226
  Transmission Date: 20090719
  Serious: Yes (Death, Hospitalization)
  Sender: FDA-Public Use
  Company Number: FR-ROCHE-611427

PATIENT
  Sex: Female

DRUGS (5)
  1. ROCEPHIN [Suspect]
     Indication: BRONCHITIS
     Route: 058
     Dates: start: 20080908, end: 20080920
  2. ROCEPHIN [Suspect]
     Dosage: DOSING REGIMEN REPORTED AS : 1 GM 1 DOSE
     Route: 058
     Dates: start: 20081101, end: 20081106
  3. SURBRONC [Suspect]
     Indication: DRUG USE FOR UNKNOWN INDICATION
     Route: 048
     Dates: start: 20081030, end: 20081101
  4. AUGMENTIN [Concomitant]
     Indication: BRONCHITIS
     Route: 048
     Dates: start: 20081030, end: 20081101
  5. SPECIAFOLDINE [Concomitant]
     Route: 048
     Dates: start: 20081009, end: 20081101

REACTIONS (1)
  - TOXIC EPIDERMAL NECROLYSIS [None]
